FAERS Safety Report 7233894-5 (Version None)
Quarter: 2011Q1

REPORT INFORMATION
  Report Type: 
  Country: None (occurrence: None)
  Receive Date: 20110119
  Receipt Date: 20100112
  Transmission Date: 20110831
  Serious: Yes (Other)
  Sender: FDA-Public Use
  Company Number: US-TEVA-198048USA

PATIENT
  Sex: Male

DRUGS (1)
  1. COPAXONE [Suspect]
     Indication: MULTIPLE SCLEROSIS
     Route: 058

REACTIONS (15)
  - PAIN [None]
  - HEART RATE INCREASED [None]
  - THROAT IRRITATION [None]
  - FLUSHING [None]
  - PRURITUS [None]
  - ANAPHYLACTIC REACTION [None]
  - SKIN MASS [None]
  - SWELLING FACE [None]
  - DRUG HYPERSENSITIVITY [None]
  - DYSPNOEA [None]
  - ABASIA [None]
  - BURNING SENSATION [None]
  - ERYTHEMA [None]
  - MUSCLE SPASMS [None]
  - BLOOD PRESSURE INCREASED [None]
